FAERS Safety Report 21746732 (Version 6)
Quarter: 2023Q2

REPORT INFORMATION
  Report Type: Spontaneous
  Country: US (occurrence: US)
  Receive Date: 20221219
  Receipt Date: 20230609
  Transmission Date: 20230721
  Serious: Yes (Death, Hospitalization, Other)
  Sender: FDA-Public Use
  Company Number: US-Accord-291622

PATIENT
  Age: 52 Year
  Sex: Male
  Weight: 164.7 kg

DRUGS (5)
  1. GEMCITABINE [Suspect]
     Active Substance: GEMCITABINE
     Indication: Ductal adenocarcinoma of pancreas
     Dosage: 2Q3W
     Route: 042
     Dates: start: 20221118, end: 20221118
  2. PACLITAXEL [Suspect]
     Active Substance: PACLITAXEL
     Indication: Ductal adenocarcinoma of pancreas
     Dosage: 2Q3W
     Route: 042
     Dates: start: 20221118, end: 20221118
  3. PEMBROLIZUMAB [Suspect]
     Active Substance: PEMBROLIZUMAB
     Indication: Ductal adenocarcinoma of pancreas
     Dosage: 1Q3W
     Route: 042
     Dates: start: 20221118, end: 20221118
  4. DEXAMETHASONE [Concomitant]
     Active Substance: DEXAMETHASONE
     Dates: start: 20221118, end: 20221128
  5. OMEPRAZOLE [Concomitant]
     Active Substance: OMEPRAZOLE
     Dates: start: 20220101, end: 20221128

REACTIONS (2)
  - Sepsis [Unknown]
  - Pneumonia [Fatal]

NARRATIVE: CASE EVENT DATE: 20221127
